FAERS Safety Report 8806642 (Version 1)
Quarter: 2012Q4

REPORT INFORMATION
  Report Type: 
  Country: US (occurrence: US)
  Receive Date: 20120925
  Receipt Date: 20120925
  Transmission Date: 20130627
  Serious: No
  Sender: FDA-Public Use
  Company Number: US-JNJFOC-20120900574

PATIENT
  Sex: Male

DRUGS (4)
  1. INVEGA SUSTENNA [Suspect]
     Indication: HALLUCINATION, AUDITORY
     Route: 030
  2. INVEGA SUSTENNA [Suspect]
     Indication: HALLUCINATION, AUDITORY
     Route: 030
  3. INVEGA SUSTENNA [Suspect]
     Indication: PARANOIA
     Route: 030
  4. INVEGA SUSTENNA [Suspect]
     Indication: PARANOIA
     Route: 030

REACTIONS (1)
  - Drooling [Unknown]
